FAERS Safety Report 8939037 (Version 4)
Quarter: 2013Q1

REPORT INFORMATION
  Report Type: Spontaneous
  Country: US (occurrence: US)
  Receive Date: 20121203
  Receipt Date: 20130315
  Transmission Date: 20140127
  Serious: Yes (Other)
  Sender: FDA-Public Use
  Company Number: US-PFIZER INC-2012301861

PATIENT
  Sex: Female

DRUGS (2)
  1. LYRICA [Suspect]
     Dosage: UNK
  2. EFFEXOR XR [Suspect]
     Dosage: UNK

REACTIONS (7)
  - Tooth infection [Unknown]
  - Gastric disorder [Unknown]
  - Dental caries [Unknown]
  - Ligament sprain [Unknown]
  - Fibromyalgia [Unknown]
  - Pain [Unknown]
  - Arthralgia [Unknown]
